FAERS Safety Report 13154000 (Version 2)
Quarter: 2017Q1

REPORT INFORMATION
  Report Type: Spontaneous
  Country: US (occurrence: US)
  Receive Date: 20170126
  Receipt Date: 20170203
  Transmission Date: 20170428
  Serious: No
  Sender: FDA-Public Use
  Company Number: US-HORIZON-ACT-0015-2017

PATIENT
  Age: 41 Year
  Sex: Male

DRUGS (5)
  1. RANITIDINE. [Concomitant]
     Active Substance: RANITIDINE
     Indication: HYPERSENSITIVITY
  2. ITRACONAZOLE. [Concomitant]
     Active Substance: ITRACONAZOLE
  3. ACTIMMUNE [Suspect]
     Active Substance: INTERFERON GAMMA-1B
     Indication: CHRONIC GRANULOMATOUS DISEASE
     Dosage: 115 ?G TIW
     Dates: start: 20120123
  4. BACTRIM [Concomitant]
     Active Substance: SULFAMETHOXAZOLE\TRIMETHOPRIM
  5. ALLEGRA [Concomitant]
     Active Substance: FEXOFENADINE HYDROCHLORIDE
     Indication: HYPERSENSITIVITY

REACTIONS (2)
  - Intentional product misuse [Unknown]
  - Sinusitis [Not Recovered/Not Resolved]

NARRATIVE: CASE EVENT DATE: 20170102
